FAERS Safety Report 6048130-5 (Version None)
Quarter: 2009Q1

REPORT INFORMATION
  Report Type: 
  Country: None (occurrence: None)
  Receive Date: 20090122
  Receipt Date: 20090122
  Transmission Date: 20090719
  Serious: Yes (Other)
  Sender: FDA-Public Use
  Company Number: None

PATIENT
  Age: 19 Year
  Sex: Female

DRUGS (1)
  1. PPD TUBERCULIN [Suspect]
     Dosage: INTRADERMAL/FLEXOR 1 DOSE
     Route: 023

REACTIONS (1)
  - RASH [None]
